FAERS Safety Report 10083321 (Version 1)
Quarter: 2014Q2

REPORT INFORMATION
  Report Type: Spontaneous
  Country: US (occurrence: None)
  Receive Date: 20140415
  Receipt Date: 20140415
  Transmission Date: 20141212
  Serious: Yes (Hospitalization)
  Sender: FDA-Public Use
  Company Number: None

PATIENT
  Age: 54 Year
  Sex: Female
  Weight: 51.26 kg

DRUGS (1)
  1. ESTRACE 0.1 MG ESTRADIOL PER GRAM WARNER CHILCOTT [Suspect]
     Indication: MENOPAUSAL SYMPTOMS
     Route: 067
     Dates: start: 20130805, end: 20131124

REACTIONS (2)
  - Ovarian cancer [None]
  - Uterine cancer [None]
